FAERS Safety Report 7944513-4 (Version None)
Quarter: 2011Q4

REPORT INFORMATION
  Report Type: 
  Country: None (occurrence: None)
  Receive Date: 20111114
  Receipt Date: 20110901
  Transmission Date: 20120403
  Serious: No
  Sender: FDA-Public Use
  Company Number: 1000023498

PATIENT
  Age: 56 Year
  Sex: Female

DRUGS (14)
  1. PROZAC [Concomitant]
  2. LIPITOR [Concomitant]
  3. KLONOPIN [Concomitant]
  4. DIOVAN [Concomitant]
  5. LORTAB (ACETAMINOPHEN, HYDROCODONE) (ACETAMINOPHEN, HYDROCODONE) [Concomitant]
  6. SAVELLA [Suspect]
     Indication: FIBROMYALGIA
     Dosage: 12.5 MG (12.5 MG, 1 IN 1 D), ORAL ;25 MG (12.5 MG, 2 IN 1 D), ORAL; 50 MG (25 MG, 2 IN 1 D), ORAL
     Route: 048
  7. SAVELLA [Suspect]
     Indication: FIBROMYALGIA
     Dosage: 12.5 MG (12.5 MG, 1 IN 1 D), ORAL ;25 MG (12.5 MG, 2 IN 1 D), ORAL; 50 MG (25 MG, 2 IN 1 D), ORAL
     Route: 048
     Dates: start: 20110601
  8. WELLBUTRIN (BUPROFION HYDROCHLORIDE) (BUPROPION HYDROCHLORIDE) [Concomitant]
  9. SOMA (CARISOPRODOL) (CARISOPRODOL) [Concomitant]
  10. LYRICA [Concomitant]
  11. MIRAPEX (PRAMIPEXOLE DIHYDROCHLORIDE) (PRAMIPEXOLE DIHYDROCHLORIDE0 [Concomitant]
  12. SAVELLA [Suspect]
     Indication: FIBROMYALGIA
     Dosage: 100 MG (50 MG, 2 IN 1 D), ORAL ; 50 MG (25 MG, 2 IN 1 D), ORAL
     Route: 048
     Dates: start: 20110801
  13. SAVELLA [Suspect]
     Indication: FIBROMYALGIA
     Dosage: 100 MG (50 MG, 2 IN 1 D), ORAL ; 50 MG (25 MG, 2 IN 1 D), ORAL
     Route: 048
     Dates: end: 20110801
  14. SYNTHROID (LEVOTHYROXINE SODIUM) (LEVOTHYROXINE SODIUM) [Concomitant]

REACTIONS (2)
  - SKIN DISORDER [None]
  - CONTUSION [None]
